FAERS Safety Report 7006655-X (Version None)
Quarter: 2010Q3

REPORT INFORMATION
  Report Type: 
  Country: None (occurrence: None)
  Receive Date: 20100910
  Receipt Date: 20100903
  Transmission Date: 20110219
  Serious: Yes (Hospitalization)
  Sender: FDA-Public Use
  Company Number: 2009-190399-NL

PATIENT
  Age: 34 Year
  Sex: Female
  Weight: 72.6 kg

DRUGS (3)
  1. NUVARING [Suspect]
     Indication: MENSTRUATION IRREGULAR
     Dates: start: 20070209, end: 20070223
  2. NUVARING [Suspect]
     Indication: OVARIAN CYST
     Dates: start: 20070209, end: 20070223
  3. GLUCOPHAGE [Concomitant]

REACTIONS (23)
  - AMNESIA [None]
  - BRONCHITIS [None]
  - CEREBROVASCULAR ACCIDENT [None]
  - CONSTIPATION [None]
  - CYST [None]
  - DRUG INTOLERANCE [None]
  - HYPERCOAGULATION [None]
  - IMPAIRED DRIVING ABILITY [None]
  - IMPAIRED WORK ABILITY [None]
  - INJECTION SITE PRURITUS [None]
  - INJECTION SITE REACTION [None]
  - NAUSEA [None]
  - OEDEMA PERIPHERAL [None]
  - OVARIAN CYST RUPTURED [None]
  - PAIN IN EXTREMITY [None]
  - POLYP [None]
  - SINUSITIS [None]
  - TOBACCO USER [None]
  - TRANSVERSE SINUS THROMBOSIS [None]
  - UTERINE MALPOSITION [None]
  - VENOUS THROMBOSIS LIMB [None]
  - VISUAL IMPAIRMENT [None]
  - VOMITING [None]
